FAERS Safety Report 9507815 (Version 1)
Quarter: 2013Q1

REPORT INFORMATION
  Report Type: Spontaneous
  Country: US (occurrence: None)
  Receive Date: 20130305
  Receipt Date: 20130305
  Transmission Date: 20140127
  Serious: Yes (Other)
  Sender: FDA-Public Use
  Company Number: 163-21880-12030506

PATIENT
  Age: 65 Year
  Sex: Male
  Weight: 76.75 kg

DRUGS (11)
  1. REVLIMID (LENALIDOMIDE) (25 MILLIGRAM, CAPSULES) [Suspect]
     Indication: PLASMA CELL MYELOMA
     Dosage: 25 MG, DAILY X 21 DAYS Q 28 DAYS
     Route: 048
     Dates: start: 20120109, end: 20120202
  2. ALLOPURINOL [Suspect]
     Indication: PRODUCT USED FOR UNKNOWN INDICATION
     Dates: end: 20120202
  3. TRANSFUSION (BLOOD AND BLOOD FORMING ORGANS) (UNKNOWN) [Concomitant]
  4. NEUPOGEN (FILGRASTIM) (UNKNOWN) [Concomitant]
  5. DEXAMETHASONE (DEXAMETHASONE) (4 MILLIGRAM, TABLETS) [Concomitant]
  6. WARFARIN (WARFARIN) (TABLETS) [Concomitant]
  7. ZOMETA (ZOLEDRONIC ACID) (UNKNOWN) [Concomitant]
  8. CIPROFLOXACIN (CIPROFLOXACIN) (UNKNOWN) [Concomitant]
  9. COUMADIN (WARFARIN SODIUM) (UNKNOWN) [Concomitant]
  10. PREDNISONE (PREDNISONE) (UNKNOWN) [Concomitant]
  11. AMOXICILLIN (AMOXICILLIN) (TABLETS) [Concomitant]

REACTIONS (6)
  - Haematuria [None]
  - Bone marrow failure [None]
  - Anaemia [None]
  - Leukopenia [None]
  - Rash [None]
  - Influenza [None]
